FAERS Safety Report 6920663-6 (Version None)
Quarter: 2010Q3

REPORT INFORMATION
  Report Type: 
  Country: None (occurrence: None)
  Receive Date: 20100812
  Receipt Date: 20100806
  Transmission Date: 20110219
  Serious: Yes (Other)
  Sender: FDA-Public Use
  Company Number: US-BAYER-201030245NA

PATIENT
  Age: 28 Year
  Sex: Female

DRUGS (6)
  1. YAZ [Suspect]
     Indication: PRODUCT USED FOR UNKNOWN INDICATION
     Dates: start: 20071001, end: 20080501
  2. YAZ [Suspect]
     Dates: start: 20050501, end: 20060501
  3. YASMIN [Suspect]
     Indication: PRODUCT USED FOR UNKNOWN INDICATION
     Dates: start: 20071001, end: 20080501
  4. YASMIN [Suspect]
     Dates: start: 20050501, end: 20060501
  5. DROSPIRENONE AND EHTINYL ESTRADIOL [Suspect]
     Indication: PRODUCT USED FOR UNKNOWN INDICATION
     Dates: start: 20070501, end: 20080501
  6. DROSPIRENONE AND EHTINYL ESTRADIOL [Suspect]
     Dates: start: 20050501, end: 20060501

REACTIONS (1)
  - CHOLECYSTECTOMY [None]
